FAERS Safety Report 6433935-9 (Version None)
Quarter: 2009Q4

REPORT INFORMATION
  Report Type: 
  Country: None (occurrence: None)
  Receive Date: 20091110
  Receipt Date: 20091030
  Transmission Date: 20100525
  Serious: No
  Sender: FDA-Public Use
  Company Number: US-B.I. PHARMACEUTICALS,INC./RIDGEFIELD-2009-BP-11950BP

PATIENT
  Sex: Male

DRUGS (3)
  1. COMBIVENT [Suspect]
     Indication: BRONCHITIS
     Dosage: 2 PUF
     Route: 055
     Dates: start: 20091012, end: 20091012
  2. MEDICATION NOT FURTHER SPECIFIED [Concomitant]
     Indication: BRONCHITIS
     Dates: start: 20091012
  3. LEVAQUIN [Concomitant]
     Indication: BRONCHITIS
     Dates: start: 20091012

REACTIONS (3)
  - GLOSSODYNIA [None]
  - ORAL DISCOMFORT [None]
  - SWOLLEN TONGUE [None]
